FAERS Safety Report 8085166-7 (Version None)
Quarter: 2012Q1

REPORT INFORMATION
  Report Type: 
  Country: None (occurrence: None)
  Receive Date: 20120128
  Receipt Date: 20110319
  Transmission Date: 20120608
  Serious: No
  Sender: FDA-Public Use
  Company Number: US-ABBOTT-11P-163-0713208-00

PATIENT
  Age: 45 Year
  Sex: Female

DRUGS (3)
  1. HUMIRA [Suspect]
     Indication: RHEUMATOID ARTHRITIS
     Dates: start: 20110306, end: 20110310
  2. NAPROXEN (ALEVE) [Concomitant]
     Indication: PRODUCT USED FOR UNKNOWN INDICATION
     Dosage: PRN
  3. METHOTREXATE [Concomitant]
     Indication: PRODUCT USED FOR UNKNOWN INDICATION
     Route: 050

REACTIONS (10)
  - INJECTION SITE OEDEMA [None]
  - FATIGUE [None]
  - RASH [None]
  - SKIN WARM [None]
  - INJECTION SITE ERYTHEMA [None]
  - DYSPNOEA [None]
  - RASH ERYTHEMATOUS [None]
  - HEADACHE [None]
  - INJECTION SITE WARMTH [None]
  - VISION BLURRED [None]
